FAERS Safety Report 11106267 (Version 1)
Quarter: 2015Q2

REPORT INFORMATION
  Report Type: Spontaneous
  Country: US (occurrence: None)
  Receive Date: 20150511
  Receipt Date: 20150511
  Transmission Date: 20150821
  Serious: Yes (Other)
  Sender: FDA-Public Use
  Company Number: None

PATIENT
  Age: 63 Year
  Sex: Female
  Weight: 58.9 kg

DRUGS (4)
  1. APIXABAN [Suspect]
     Active Substance: APIXABAN
     Indication: PULMONARY EMBOLISM
     Dosage: 1 PILL, BID, ORAL?2 WEEKS
     Route: 048
  2. APIXABAN [Suspect]
     Active Substance: APIXABAN
     Indication: ATRIAL FIBRILLATION
     Dosage: 1 PILL, BID, ORAL?2 WEEKS
     Route: 048
  3. APIXABAN [Suspect]
     Active Substance: APIXABAN
     Indication: DEEP VEIN THROMBOSIS
     Dosage: 1 PILL, BID, ORAL?2 WEEKS
     Route: 048
  4. PHENYTOIN. [Concomitant]
     Active Substance: PHENYTOIN

REACTIONS (1)
  - International normalised ratio increased [None]

NARRATIVE: CASE EVENT DATE: 20150118
